FAERS Safety Report 4955535-X (Version None)
Quarter: 2006Q1

REPORT INFORMATION
  Report Type: 
  Country: None (occurrence: None)
  Receive Date: 20060127
  Receipt Date: 20050713
  Transmission Date: 20060701
  Serious: Yes (Hospitalization, Other)
  Sender: FDA-Public Use
  Company Number: 05-07-1199

PATIENT
  Age: 27 Year
  Sex: Male

DRUGS (1)
  1. CLOZAPINE [Suspect]
     Indication: SCHIZOPHRENIA
     Dosage: 100 MG, QD, ORAL
     Route: 048
     Dates: start: 20050602, end: 20050615

REACTIONS (1)
  - CONVULSION [None]
